FAERS Safety Report 6555725-9 (Version None)
Quarter: 2010Q1

REPORT INFORMATION
  Report Type: 
  Country: None (occurrence: None)
  Receive Date: 20100125
  Receipt Date: 20100108
  Transmission Date: 20100710
  Serious: Yes (Life-Threatening, Hospitalization)
  Sender: FDA-Public Use
  Company Number: AUR-APL-2010-00074

PATIENT
  Age: 73 Year
  Sex: Female
  Weight: 150 kg

DRUGS (12)
  1. METFORMIN HCL [Suspect]
  2. MELOXICAM [Suspect]
  3. CEFACLOR [Concomitant]
  4. CO-FLUAMPICIL [Concomitant]
  5. ERYTHROMYCIN [Concomitant]
  6. GABAPENTIN [Concomitant]
  7. HUMALOG [Concomitant]
  8. HUMALOG [Concomitant]
  9. LOPERAMIDE [Concomitant]
  10. OMEPRAZOLE [Concomitant]
  11. OXYBUTYNIN [Concomitant]
  12. WARFARIN SODIUM [Concomitant]

REACTIONS (1)
  - BLOOD POTASSIUM INCREASED [None]
